FAERS Safety Report 8396427-6 (Version None)
Quarter: 2012Q2

REPORT INFORMATION
  Report Type: 
  Country: None (occurrence: None)
  Receive Date: 20120530
  Receipt Date: 20120524
  Transmission Date: 20120825
  Serious: Yes (Other)
  Sender: FDA-Public Use
  Company Number: US-MERCK-1205USA04739

PATIENT
  Age: 58 Year
  Sex: Female
  Weight: 60 kg

DRUGS (1)
  1. FOSAMAX [Suspect]
     Indication: OSTEOPENIA
     Route: 048

REACTIONS (10)
  - HYPERTENSION [None]
  - BLOOD CHOLESTEROL INCREASED [None]
  - UTERINE DISORDER [None]
  - DYSPEPSIA [None]
  - HERPES ZOSTER [None]
  - BENIGN BREAST NEOPLASM [None]
  - ABDOMINAL PAIN [None]
  - ARTHROPATHY [None]
  - HYPOTHYROIDISM [None]
  - ARTHRITIS [None]
